FAERS Safety Report 4323338-5 (Version None)
Quarter: 2004Q1

REPORT INFORMATION
  Report Type: 
  Country: None (occurrence: None)
  Receive Date: 20040323
  Receipt Date: 20040323
  Transmission Date: 20041129
  Serious: Yes (Other)
  Sender: FDA-Public Use
  Company Number: None

PATIENT
  Age: 70 Year
  Sex: Male
  Weight: 74.8 kg

DRUGS (2)
  1. LEVAQUIN [Suspect]
     Indication: INFECTION
     Dosage: 500 MG DAIL ORAL
     Route: 048
     Dates: start: 20030517, end: 20030527
  2. TERAZOSIN HCL [Concomitant]

REACTIONS (1)
  - MYALGIA [None]
